FAERS Safety Report 13088281 (Version 1)
Quarter: 2017Q1

REPORT INFORMATION
  Report Type: Spontaneous
  Country: FR (occurrence: FR)
  Receive Date: 20170105
  Receipt Date: 20170105
  Transmission Date: 20170428
  Serious: Yes (Hospitalization)
  Sender: FDA-Public Use
  Company Number: FR-GLAXOSMITHKLINE-FR2016GSK195006

PATIENT
  Sex: Male

DRUGS (12)
  1. SALBUTAMOL [Concomitant]
     Active Substance: ALBUTEROL
     Dosage: UNK
     Dates: start: 20161116
  2. IPRATROPIUM [Concomitant]
     Active Substance: IPRATROPIUM
     Dosage: 0.52 UNK, UNK
     Dates: start: 20161116
  3. PANTOPRAZOLE [Concomitant]
     Active Substance: PANTOPRAZOLE SODIUM
     Dosage: 40 MG, QD
  4. INFLUVAC [Suspect]
     Active Substance: INFLUENZA VIRUS VACCINE
     Dosage: UNK, SINGLE
     Route: 042
     Dates: start: 20161118, end: 20161118
  5. BISOPROLOL [Concomitant]
     Active Substance: BISOPROLOL
     Dosage: UNK
  6. CLOMIPRAMINE [Concomitant]
     Active Substance: CLOMIPRAMINE
  7. RAMIPRIL. [Concomitant]
     Active Substance: RAMIPRIL
     Dosage: 10 MG, 1D
     Route: 048
  8. PREVNAR 13 [Suspect]
     Active Substance: PNEUMOCOCCAL 13-VALENT CONJUGATE VACCINE
     Dosage: UNK
     Route: 058
  9. NICOPATCH [Suspect]
     Active Substance: NICOTINE
     Indication: PRODUCT USED FOR UNKNOWN INDICATION
     Dosage: 1 DF, QD
     Route: 062
     Dates: start: 20161108, end: 20161114
  10. TARDYFERON [Suspect]
     Active Substance: FERROUS SULFATE
     Indication: PRODUCT USED FOR UNKNOWN INDICATION
     Dosage: 80 MG, QD
     Route: 048
     Dates: start: 20161119, end: 20161121
  11. LOVENOX [Concomitant]
     Active Substance: ENOXAPARIN SODIUM
     Dosage: UNK
     Dates: start: 20161107
  12. KARDEGIC [Concomitant]
     Active Substance: ASPIRIN LYSINE
     Dosage: 75 MG, UNK
     Route: 048

REACTIONS (1)
  - Drug eruption [Unknown]
